FAERS Safety Report 14757699 (Version 4)
Quarter: 2018Q2

REPORT INFORMATION
  Report Type: Report from Study
  Country: US (occurrence: US)
  Receive Date: 20180413
  Receipt Date: 20180629
  Transmission Date: 20180711
  Serious: Yes (Other)
  Sender: FDA-Public Use
  Company Number: US-IPSEN BIOPHARMACEUTICALS, INC.-2018-05031

PATIENT
  Sex: Female
  Weight: 40 kg

DRUGS (3)
  1. DYSPORT [Suspect]
     Active Substance: ABOBOTULINUMTOXINA
     Indication: OFF LABEL USE
  2. DYSPORT [Suspect]
     Active Substance: ABOBOTULINUMTOXINA
     Indication: EARLY ONSET PRIMARY DYSTONIA
     Dosage: 2000 UNITS
     Route: 065
     Dates: start: 20180306, end: 20180306
  3. DYSPORT [Suspect]
     Active Substance: ABOBOTULINUMTOXINA
     Indication: EARLY ONSET PRIMARY DYSTONIA

REACTIONS (13)
  - Gait inability [Not Recovered/Not Resolved]
  - Nocturnal dyspnoea [Not Recovered/Not Resolved]
  - Wheezing [Not Recovered/Not Resolved]
  - Vision blurred [Not Recovered/Not Resolved]
  - Muscular weakness [Not Recovered/Not Resolved]
  - Headache [Not Recovered/Not Resolved]
  - Pain [Not Recovered/Not Resolved]
  - Rales [Not Recovered/Not Resolved]
  - Product preparation error [Unknown]
  - Sinusitis [Not Recovered/Not Resolved]
  - Cough [Not Recovered/Not Resolved]
  - Off label use [Unknown]
  - Foaming at mouth [Not Recovered/Not Resolved]

NARRATIVE: CASE EVENT DATE: 2018
